FAERS Safety Report 17428641 (Version 8)
Quarter: 2020Q2

REPORT INFORMATION
  Report Type: Report from Study
  Country: US (occurrence: US)
  Receive Date: 20200217
  Receipt Date: 20200427
  Transmission Date: 20200713
  Serious: Yes (Hospitalization, Other)
  Sender: FDA-Public Use
  Company Number: NVSC2020US040225

PATIENT
  Age: 65 Year
  Sex: Female

DRUGS (1)
  1. ENTRESTO [Suspect]
     Active Substance: SACUBITRIL\VALSARTAN
     Indication: CARDIAC FAILURE CHRONIC
     Dosage: 49 MG, BID
     Route: 048
     Dates: start: 201912

REACTIONS (23)
  - Insomnia [Recovering/Resolving]
  - Ear discomfort [Recovering/Resolving]
  - Rhinorrhoea [Recovering/Resolving]
  - Dizziness [Recovering/Resolving]
  - International normalised ratio abnormal [Recovering/Resolving]
  - Atrial fibrillation [Unknown]
  - Middle insomnia [Recovering/Resolving]
  - Ill-defined disorder [Unknown]
  - Oropharyngeal pain [Recovering/Resolving]
  - Sensory disturbance [Unknown]
  - Dyspnoea [Recovered/Resolved]
  - Fatigue [Recovered/Resolved]
  - Malaise [Unknown]
  - Nasopharyngitis [Unknown]
  - Nasal congestion [Recovering/Resolving]
  - Pyrexia [Recovering/Resolving]
  - Memory impairment [Unknown]
  - Feeling hot [Recovering/Resolving]
  - Fatigue [Recovering/Resolving]
  - Depressed mood [Recovering/Resolving]
  - Cough [Unknown]
  - Decreased appetite [Recovering/Resolving]
  - Dyspnoea [Unknown]

NARRATIVE: CASE EVENT DATE: 202002
